FAERS Safety Report 4427878-X (Version None)
Quarter: 2004Q3

REPORT INFORMATION
  Report Type: 
  Country: None (occurrence: None)
  Receive Date: 20040813
  Receipt Date: 20040806
  Transmission Date: 20050211
  Serious: Yes (Life-Threatening, Hospitalization)
  Sender: FDA-Public Use
  Company Number: A0518775A

PATIENT
  Age: 60 Year
  Sex: Male

DRUGS (4)
  1. VINORELBINE TARTRATE                    (VINORELBINE TARTRATE) [Suspect]
     Indication: LUNG NEOPLASM MALIGNANT
     Dosage: 25 MG/M2 PER DAY / INTRAVENOUS
     Route: 042
  2. CISPLATIN [Suspect]
     Dosage: 75 MG/M2 / INTRAVENOUS
     Route: 042
  3. MANNITOL [Concomitant]
  4. DEXAMETHASONE [Concomitant]

REACTIONS (4)
  - COMPUTERISED TOMOGRAM ABDOMEN ABNORMAL [None]
  - SPLENIC HAEMATOMA [None]
  - SPLENIC RUPTURE [None]
  - SPLENOMEGALY [None]
